FAERS Safety Report 9722881 (Version 1)
Quarter: 2013Q4

REPORT INFORMATION
  Report Type: Spontaneous
  Country: US (occurrence: None)
  Receive Date: 20131126
  Receipt Date: 20131126
  Transmission Date: 20140711
  Serious: Yes (Disabling)
  Sender: FDA-Public Use
  Company Number: 2013US009784

PATIENT
  Age: 57 Year
  Sex: Female
  Weight: 60 kg

DRUGS (2)
  1. ALOXI [Suspect]
     Indication: PROPHYLAXIS OF NAUSEA AND VOMITING
     Route: 042
     Dates: start: 20131107, end: 20131107
  2. CHEMOTHERAPEUTICS [Suspect]
     Indication: BREAST CANCER METASTATIC
     Dates: start: 20131107

REACTIONS (2)
  - Vomiting [None]
  - Nausea [None]
